FAERS Safety Report 9336997 (Version 1)
Quarter: 2013Q2

REPORT INFORMATION
  Report Type: Spontaneous
  Country: US (occurrence: US)
  Receive Date: 20130607
  Receipt Date: 20130607
  Transmission Date: 20140414
  Serious: Yes (Hospitalization, Other)
  Sender: FDA-Public Use
  Company Number: US-TEVA-409607USA

PATIENT
  Age: 53 Year
  Sex: Male

DRUGS (1)
  1. COPAXONE [Suspect]
     Indication: MULTIPLE SCLEROSIS
     Dates: start: 20031116

REACTIONS (4)
  - Colon cancer [Unknown]
  - Colon operation [Unknown]
  - Multiple sclerosis relapse [Unknown]
  - Clostridium difficile infection [Unknown]
